FAERS Safety Report 6576393-6 (Version None)
Quarter: 2010Q1

REPORT INFORMATION
  Report Type: 
  Country: None (occurrence: None)
  Receive Date: 20100210
  Receipt Date: 20100105
  Transmission Date: 20100710
  Serious: Yes (Death)
  Sender: FDA-Public Use
  Company Number: US-TYCO HEALTHCARE/MALLINCKRODT-T201000282

PATIENT
  Age: 40 Year
  Sex: Female

DRUGS (7)
  1. OXYCODONE HCL [Suspect]
     Dosage: UNK
     Route: 048
  2. BENZODIAZEPINE [Suspect]
     Route: 048
  3. CARISOPRODOL [Suspect]
     Dosage: UNK
     Route: 048
  4. PROMETHAZINE [Suspect]
     Dosage: UNK
     Route: 048
  5. DIPHENHYDRAMINE [Suspect]
     Dosage: UNK
     Route: 048
  6. DOCUSATE [Suspect]
     Dosage: UNK
     Route: 048
  7. GABITRIL [Suspect]
     Dosage: UNK
     Route: 048

REACTIONS (1)
  - CARDIO-RESPIRATORY ARREST [None]
